FAERS Safety Report 4927264-X (Version None)
Quarter: 2006Q1

REPORT INFORMATION
  Report Type: 
  Country: None (occurrence: None)
  Receive Date: 20060228
  Receipt Date: 20050401
  Transmission Date: 20060701
  Serious: No
  Sender: FDA-Public Use
  Company Number: US-GLAXOSMITHKLINE-A0552348A

PATIENT
  Age: 48 Year
  Sex: Female

DRUGS (9)
  1. IMITREX [Suspect]
     Indication: MIGRAINE
     Route: 058
     Dates: start: 19960101
  2. CIMETIDINE [Concomitant]
  3. PRILOSEC [Concomitant]
  4. BELLADONA [Concomitant]
  5. OXYCONTIN [Concomitant]
  6. AMITRIPTYLINE HCL [Concomitant]
  7. NORTRIPTYLINE HCL [Concomitant]
  8. AMBIEN [Concomitant]
  9. TEMAZEPAM [Concomitant]

REACTIONS (3)
  - DRUG ADMINISTRATION ERROR [None]
  - PHARMACEUTICAL PRODUCT COMPLAINT [None]
  - URINARY TRACT INFECTION [None]
